FAERS Safety Report 6881478-0 (Version None)
Quarter: 2010Q3

REPORT INFORMATION
  Report Type: 
  Country: None (occurrence: None)
  Receive Date: 20100729
  Receipt Date: 20100723
  Transmission Date: 20110219
  Serious: Yes (Other)
  Sender: FDA-Public Use
  Company Number: US-ASTRAZENECA-2009UW17570

PATIENT
  Age: 40 Year
  Sex: Female
  Weight: 68 kg

DRUGS (13)
  1. SEROQUEL [Suspect]
     Indication: BIPOLAR I DISORDER
     Route: 048
     Dates: start: 19990101, end: 20090401
  2. SEROQUEL [Suspect]
     Dosage: 300 MG TAKE THREE TABLETS BY MOUTH AT HOURS OF SLEEP DAILY
     Route: 048
     Dates: start: 20051020, end: 20090301
  3. DEPAKOTE [Concomitant]
  4. LAMICTAL [Concomitant]
  5. LAMICTAL [Concomitant]
     Route: 048
     Dates: start: 20051020
  6. CLONAZEPAM [Concomitant]
  7. AMBIEN [Concomitant]
  8. RISPERDAL [Concomitant]
     Dates: start: 20090401
  9. COMPAZINE [Concomitant]
     Dosage: 10 MG 4 TO 6 HRS AS NEEDED
     Route: 048
     Dates: start: 20051020
  10. EFFEXOR XR [Concomitant]
     Route: 048
     Dates: start: 20051020
  11. ATIVAN [Concomitant]
     Dosage: 1 MG FOUR TIMES DAILY AS NEEDED
     Route: 048
     Dates: start: 20051020
  12. GLUCOPHAGE [Concomitant]
     Route: 048
     Dates: start: 20051020
  13. GLUCOPHAGE [Concomitant]
     Route: 048
     Dates: start: 20051020

REACTIONS (4)
  - NEUROPATHY PERIPHERAL [None]
  - OBESITY [None]
  - TYPE 1 DIABETES MELLITUS [None]
  - TYPE 2 DIABETES MELLITUS [None]
